FAERS Safety Report 10157634 (Version 2)
Quarter: 2014Q2

REPORT INFORMATION
  Report Type: Spontaneous
  Country: US (occurrence: US)
  Receive Date: 20140507
  Receipt Date: 20140619
  Transmission Date: 20141212
  Serious: Yes (Other)
  Sender: FDA-Public Use
  Company Number: US-PFIZER INC-2014125223

PATIENT
  Age: 56 Year
  Sex: Female
  Weight: 68.93 kg

DRUGS (6)
  1. LIPITOR [Suspect]
     Indication: LOW DENSITY LIPOPROTEIN INCREASED
     Dosage: 10 MG, DAILY
     Route: 048
     Dates: start: 20070129, end: 200906
  2. LIPITOR [Suspect]
     Indication: CARDIOVASCULAR EVENT PROPHYLAXIS
     Dosage: 10 MG, DAILY
     Route: 048
     Dates: start: 20090721, end: 200910
  3. LIPITOR [Suspect]
     Dosage: UNK
     Route: 048
     Dates: start: 200911, end: 201202
  4. VITAMIN B12 [Concomitant]
     Indication: VITAMIN B12 DEFICIENCY
     Dosage: UNK, DAILY
     Dates: start: 2007, end: 2012
  5. GLUCOSAMINE [Concomitant]
     Indication: PAIN PROPHYLAXIS
     Dosage: 1500 MG, DAILY
     Dates: start: 2008, end: 2012
  6. CENTRUM SILVER [Concomitant]
     Indication: ROUTINE HEALTH MAINTENANCE
     Dosage: UNK, DAILY
     Dates: start: 2008, end: 2012

REACTIONS (1)
  - Type 2 diabetes mellitus [Not Recovered/Not Resolved]
